FAERS Safety Report 8934821 (Version 3)
Quarter: 2012Q4

REPORT INFORMATION
  Report Type: Report from Study
  Country: RU (occurrence: RU)
  Receive Date: 20121129
  Receipt Date: 20121212
  Transmission Date: 20130627
  Serious: Yes (Death)
  Sender: FDA-Public Use
  Company Number: RU-TEVA-373066USA

PATIENT
  Age: 55 Year
  Sex: Female
  Weight: 98 kg

DRUGS (3)
  1. TREANDA [Suspect]
     Indication: NON-HODGKIN^S LYMPHOMA
     Dosage: UID/QD
     Route: 041
     Dates: start: 20121025
  2. RITUXIMAB [Concomitant]
     Indication: NON-HODGKIN^S LYMPHOMA
     Dosage: once daily
     Route: 042
     Dates: start: 20121025, end: 20121025
  3. FERRUM LEK [Concomitant]
     Indication: ANAEMIA
     Dosage: twice daily
     Route: 048
     Dates: start: 20120612

REACTIONS (2)
  - Respiratory failure [Fatal]
  - Hyperthermia [Fatal]
